FAERS Safety Report 23325742 (Version 1)
Quarter: 2023Q4

REPORT INFORMATION
  Report Type: Spontaneous
  Country: US (occurrence: US)
  Receive Date: 20231221
  Receipt Date: 20231221
  Transmission Date: 20240110
  Serious: Yes (Death)
  Sender: FDA-Public Use
  Company Number: US-002147023-NVSC2023US270610

PATIENT
  Sex: Male

DRUGS (2)
  1. PROMACTA [Suspect]
     Active Substance: ELTROMBOPAG OLAMINE
     Indication: Acute lymphocytic leukaemia
     Dosage: 75 MG, QD (TAKE 2 TABLETS BY MOUTH ONCE DAILY FOR 21DAYS OF 28 DAYS CYCLE)
     Route: 048
     Dates: start: 202303
  2. PROMACTA [Suspect]
     Active Substance: ELTROMBOPAG OLAMINE
     Indication: Aplastic anaemia

REACTIONS (2)
  - Death [Fatal]
  - Off label use [Unknown]
